FAERS Safety Report 8575444-7 (Version None)
Quarter: 2012Q3

REPORT INFORMATION
  Report Type: 
  Country: None (occurrence: None)
  Receive Date: 20120807
  Receipt Date: 20120801
  Transmission Date: 20120928
  Serious: Yes (Other)
  Sender: FDA-Public Use
  Company Number: PHHY2010JP64467

PATIENT
  Sex: Male

DRUGS (2)
  1. TASIGNA [Suspect]
     Dosage: 200 MG, DAILY
     Route: 048
     Dates: start: 20100107
  2. TASIGNA [Suspect]
     Indication: CHRONIC MYELOID LEUKAEMIA
     Dosage: 400 MG, DAILY
     Route: 048
     Dates: start: 20091208, end: 20100104

REACTIONS (4)
  - ELECTROCARDIOGRAM QT PROLONGED [None]
  - BLOOD CREATININE INCREASED [None]
  - LIPASE INCREASED [None]
  - INTERSTITIAL LUNG DISEASE [None]
